FAERS Safety Report 4420884-0 (Version None)
Quarter: 2004Q3

REPORT INFORMATION
  Report Type: 
  Country: None (occurrence: None)
  Receive Date: 20040804
  Receipt Date: 20040722
  Transmission Date: 20050211
  Serious: Yes (Hospitalization)
  Sender: FDA-Public Use
  Company Number: BE-JNJFOC-20040701962

PATIENT
  Age: 50 Year
  Sex: Male

DRUGS (6)
  1. REMICADE [Suspect]
     Indication: SPONDYLOARTHROPATHY
     Dosage: SEE IMAGE
     Route: 042
     Dates: start: 20040330, end: 20040330
  2. REMICADE [Suspect]
     Indication: SPONDYLOARTHROPATHY
     Dosage: SEE IMAGE
     Route: 042
     Dates: start: 20040413, end: 20040413
  3. REMICADE [Suspect]
     Indication: SPONDYLOARTHROPATHY
     Dosage: SEE IMAGE
     Route: 042
     Dates: start: 20040511, end: 20040511
  4. ATENOLOL [Concomitant]
  5. OMEPRAZOLE [Concomitant]
  6. CELEBREX [Concomitant]

REACTIONS (5)
  - DISSEMINATED TUBERCULOSIS [None]
  - HEPATITIS GRANULOMATOUS [None]
  - LIVER DISORDER [None]
  - PULMONARY GRANULOMA [None]
  - PULMONARY TUBERCULOSIS [None]
